FAERS Safety Report 7740205-5 (Version None)
Quarter: 2011Q3

REPORT INFORMATION
  Report Type: 
  Country: None (occurrence: None)
  Receive Date: 20110909
  Receipt Date: 20110909
  Transmission Date: 20111222
  Serious: Yes (Hospitalization)
  Sender: FDA-Public Use
  Company Number: None

PATIENT
  Age: 70 Year
  Sex: Male

DRUGS (1)
  1. DONEPEZIL HCL [Suspect]
     Dosage: 10 MG
     Route: 048

REACTIONS (1)
  - HYPOMANIA [None]
